FAERS Safety Report 16515809 (Version 1)
Quarter: 2019Q3

REPORT INFORMATION
  Report Type: Spontaneous
  Country: US (occurrence: US)
  Receive Date: 20190702
  Receipt Date: 20190702
  Transmission Date: 20191004
  Serious: Yes (Hospitalization)
  Sender: FDA-Public Use
  Company Number: None

PATIENT
  Sex: Female

DRUGS (4)
  1. AFINITOR [Suspect]
     Active Substance: EVEROLIMUS
     Indication: EPILEPSY
     Route: 048
     Dates: start: 20180801
  2. ATORVASTATIN, KLONOPIN, LAMOTRIGINE, RISPERIDONE [Concomitant]
  3. CALCIUM, LAMISIL, FENOFIBRATE, FLONASE, PROPRANOLOL [Concomitant]
  4. DEPAKOTE, MULTI VIT, OXYBUTYNIN, CARBAMAZEPIN [Concomitant]

REACTIONS (2)
  - Product dose omission [None]
  - Treatment noncompliance [None]
